FAERS Safety Report 9192222 (Version 1)
Quarter: 2013Q1

REPORT INFORMATION
  Report Type: Spontaneous
  Country: US (occurrence: None)
  Receive Date: 20130325
  Receipt Date: 20130325
  Transmission Date: 20140127
  Serious: Yes (Other)
  Sender: FDA-Public Use
  Company Number: GER/UKI/13/0028624

PATIENT
  Age: 26 Year
  Sex: Female

DRUGS (1)
  1. QUETIAPINE (QUETIAPINE) [Suspect]
     Indication: BIPOLAR DISORDER
     Route: 048

REACTIONS (8)
  - Maternal exposure timing unspecified [None]
  - Intracranial pressure increased [None]
  - Intracranial pressure increased [None]
  - Vitreous floaters [None]
  - Optic neuritis [None]
  - Photopsia [None]
  - Papilloedema [None]
  - Oedema [None]
